FAERS Safety Report 11330404 (Version 1)
Quarter: 2015Q3

REPORT INFORMATION
  Report Type: Other
  Country: US (occurrence: US)
  Receive Date: 20150803
  Receipt Date: 20150803
  Transmission Date: 20151125
  Serious: Yes (Other)
  Sender: FDA-Public Use
  Company Number: US-AUROBINDO-AUR-APU-2015-06275

PATIENT

DRUGS (2)
  1. ESCITALOPRAM TABLETS USP 20MG [Suspect]
     Active Substance: ESCITALOPRAM OXALATE
     Indication: PRODUCT USED FOR UNKNOWN INDICATION
     Dosage: 20 MG, UNK
     Route: 065
  2. ESCITALOPRAM TABLETS USP 20MG [Suspect]
     Active Substance: ESCITALOPRAM OXALATE
     Dosage: 20 MG, UNK
     Route: 065

REACTIONS (10)
  - Myalgia [Recovering/Resolving]
  - Depression [Unknown]
  - Feelings of worthlessness [Unknown]
  - Product substitution issue [Unknown]
  - Bone pain [Recovering/Resolving]
  - Insomnia [Unknown]
  - Regressive behaviour [Unknown]
  - Arthralgia [Recovering/Resolving]
  - Disturbance in attention [Unknown]
  - Activities of daily living impaired [Recovering/Resolving]
